FAERS Safety Report 16128096 (Version 7)
Quarter: 2020Q1

REPORT INFORMATION
  Report Type: Report from Study
  Country: FR (occurrence: FR)
  Receive Date: 20190328
  Receipt Date: 20200210
  Transmission Date: 20200409
  Serious: Yes (Hospitalization, Other)
  Sender: FDA-Public Use
  Company Number: FR-ROCHE-2266229

PATIENT
  Age: 67 Year
  Sex: Male
  Weight: 79 kg

DRUGS (31)
  1. ADOPORT [Suspect]
     Active Substance: TACROLIMUS
     Route: 048
     Dates: start: 20181221
  2. ADOPORT [Suspect]
     Active Substance: TACROLIMUS
     Route: 048
     Dates: start: 20181223, end: 20181224
  3. ADOPORT [Suspect]
     Active Substance: TACROLIMUS
     Route: 048
     Dates: start: 20181224, end: 20181225
  4. ADOPORT [Suspect]
     Active Substance: TACROLIMUS
     Route: 048
     Dates: start: 20190205, end: 20190226
  5. ADOPORT [Suspect]
     Active Substance: TACROLIMUS
     Route: 048
     Dates: start: 20190328, end: 20190405
  6. FOLINATE DE CALCIUM [Concomitant]
     Active Substance: LEUCOVORIN CALCIUM
     Indication: PRODUCT USED FOR UNKNOWN INDICATION
     Dosage: UNK
     Route: 065
     Dates: start: 20181222
  7. ADOPORT [Suspect]
     Active Substance: TACROLIMUS
     Route: 048
     Dates: start: 20190101, end: 20190108
  8. SULFAMETHOXAZOLE/TRIMETHOPRIM [Concomitant]
     Active Substance: SULFAMETHOXAZOLE\TRIMETHOPRIM
     Indication: PRODUCT USED FOR UNKNOWN INDICATION
     Dosage: UNK
     Route: 065
     Dates: start: 20181220
  9. PREDNISONE. [Suspect]
     Active Substance: PREDNISONE
     Indication: PROPHYLAXIS AGAINST TRANSPLANT REJECTION
     Dosage: 10 OT
     Route: 065
     Dates: start: 20190325
  10. PARACETAMOL [Concomitant]
     Active Substance: ACETAMINOPHEN
     Indication: PRODUCT USED FOR UNKNOWN INDICATION
     Dosage: UNK
     Route: 065
     Dates: start: 20181222
  11. ADOPORT [Suspect]
     Active Substance: TACROLIMUS
     Indication: RENAL TRANSPLANT
     Route: 048
     Dates: start: 20181221, end: 20181222
  12. ADOPORT [Suspect]
     Active Substance: TACROLIMUS
     Route: 048
     Dates: start: 20181221
  13. ADOPORT [Suspect]
     Active Substance: TACROLIMUS
     Route: 048
     Dates: start: 20190108
  14. MYFORTIC [Suspect]
     Active Substance: MYCOPHENOLATE SODIUM
     Indication: TRANSPLANT
     Route: 065
     Dates: start: 20181220, end: 20190325
  15. VALGANCICLOVIR. [Suspect]
     Active Substance: VALGANCICLOVIR
     Indication: CYTOMEGALOVIRUS INFECTION
     Route: 065
     Dates: start: 20181221
  16. CLARITHROMYCIN. [Concomitant]
     Active Substance: CLARITHROMYCIN
     Indication: PRODUCT USED FOR UNKNOWN INDICATION
     Route: 065
     Dates: start: 20190802, end: 20190816
  17. ADOPORT [Suspect]
     Active Substance: TACROLIMUS
     Route: 048
     Dates: start: 20190510
  18. EZETIMIBE. [Concomitant]
     Active Substance: EZETIMIBE
     Indication: PRODUCT USED FOR UNKNOWN INDICATION
     Dosage: UNK
     Route: 065
     Dates: start: 20180101
  19. LANSOPRAZOLE. [Concomitant]
     Active Substance: LANSOPRAZOLE
     Indication: PRODUCT USED FOR UNKNOWN INDICATION
     Dosage: UNK
     Route: 065
     Dates: start: 20181221
  20. ADOPORT [Suspect]
     Active Substance: TACROLIMUS
     Route: 048
     Dates: start: 20181221
  21. ADOPORT [Suspect]
     Active Substance: TACROLIMUS
     Route: 048
     Dates: start: 20190321
  22. ADOPORT [Suspect]
     Active Substance: TACROLIMUS
     Route: 048
     Dates: start: 20190226, end: 20190311
  23. ADOPORT [Suspect]
     Active Substance: TACROLIMUS
     Route: 048
     Dates: start: 20190405, end: 20190510
  24. ADOPORT [Suspect]
     Active Substance: TACROLIMUS
     Route: 048
     Dates: start: 20190311, end: 20190321
  25. VALGANCICLOVIR. [Suspect]
     Active Substance: VALGANCICLOVIR
     Route: 065
     Dates: start: 20181224
  26. VILDAGLIPTINE [Concomitant]
     Active Substance: VILDAGLIPTIN
     Indication: PRODUCT USED FOR UNKNOWN INDICATION
     Dosage: UNK
     Route: 065
     Dates: start: 20181225
  27. ADOPORT [Suspect]
     Active Substance: TACROLIMUS
     Route: 048
     Dates: start: 20181225, end: 20190101
  28. ADOPORT [Suspect]
     Active Substance: TACROLIMUS
     Route: 048
     Dates: start: 20181222, end: 20181223
  29. MYFORTIC [Suspect]
     Active Substance: MYCOPHENOLATE SODIUM
     Indication: PROPHYLAXIS AGAINST TRANSPLANT REJECTION
  30. ACETYLSALICYLIC ACID [Concomitant]
     Active Substance: ASPIRIN
     Indication: PRODUCT USED FOR UNKNOWN INDICATION
     Dosage: UNK
     Route: 065
     Dates: start: 20180901
  31. NEBIVOLOL. [Concomitant]
     Active Substance: NEBIVOLOL
     Indication: PRODUCT USED FOR UNKNOWN INDICATION
     Dosage: UNK
     Route: 065
     Dates: start: 20180101

REACTIONS (14)
  - Hypotension [Recovered/Resolved]
  - Hypertension [Not Recovered/Not Resolved]
  - Hyperparathyroidism [Not Recovered/Not Resolved]
  - Polyomavirus-associated nephropathy [Recovering/Resolving]
  - Abdominal pain [Recovered/Resolved]
  - Helicobacter gastritis [Recovered/Resolved]
  - Diabetes mellitus inadequate control [Recovering/Resolving]
  - Leukopenia [Recovered/Resolved]
  - Ascites [Not Recovered/Not Resolved]
  - Haemoglobinaemia [Recovered/Resolved]
  - Diarrhoea [Recovered/Resolved]
  - Acidosis [Recovered/Resolved]
  - Renal artery stenosis [Recovered/Resolved]
  - Anaemia [Recovered/Resolved]

NARRATIVE: CASE EVENT DATE: 20181222
